FAERS Safety Report 5898757-6 (Version None)
Quarter: 2008Q3

REPORT INFORMATION
  Report Type: 
  Country: None (occurrence: None)
  Receive Date: 20080925
  Receipt Date: 20080528
  Transmission Date: 20090109
  Serious: No
  Sender: FDA-Public Use
  Company Number: A0729960A

PATIENT
  Age: 45 Year
  Sex: Female

DRUGS (8)
  1. WELLBUTRIN XL [Suspect]
     Indication: DEPRESSION
     Dosage: 300MG PER DAY
     Route: 048
     Dates: start: 20050801
  2. ACIPHEX [Concomitant]
  3. SINGULAIR [Concomitant]
  4. ADVAIR DISKUS 100/50 [Concomitant]
  5. PROAIR HFA [Concomitant]
  6. VERAMYST [Concomitant]
  7. ASTELIN [Concomitant]
  8. ZYRTEC [Concomitant]

REACTIONS (1)
  - BLOOD PROLACTIN INCREASED [None]
